FAERS Safety Report 5533825-X (Version None)
Quarter: 2007Q4

REPORT INFORMATION
  Report Type: 
  Country: None (occurrence: None)
  Receive Date: 20071129
  Receipt Date: 20071122
  Transmission Date: 20080405
  Serious: Yes (Death)
  Sender: FDA-Public Use
  Company Number: 2007S1012229

PATIENT
  Age: 14 Year
  Sex: Female

DRUGS (2)
  1. CLARUS (ISOTRETINOIN) [Suspect]
     Indication: ACNE
     Dosage: 40 MG; DAILY; ORAL
     Route: 048
     Dates: start: 20070328, end: 20071001
  2. MINOCIN [Suspect]

REACTIONS (1)
  - COMPLETED SUICIDE [None]
